FAERS Safety Report 4801869-9 (Version None)
Quarter: 2005Q4

REPORT INFORMATION
  Report Type: 
  Country: None (occurrence: None)
  Receive Date: 20051011
  Receipt Date: 20050928
  Transmission Date: 20060501
  Serious: Yes (Other)
  Sender: FDA-Public Use
  Company Number: 2005134700

PATIENT
  Age: 67 Year
  Sex: Male
  Weight: 81.6475 kg

DRUGS (8)
  1. LISTERINE (MENTHOL, METHYL SALICYLATE, EUCALYPTOL, THYMOL) [Suspect]
     Indication: ALCOHOLISM
     Dosage: 4-6 OZ, POSSIBLY DAILY, ORAL
     Route: 048
     Dates: start: 20050901
  2. METOPROLOL TARTRATE [Concomitant]
  3. ACAMPROSATE CALCIUM (ACAMPROSATE CALCIUM) [Concomitant]
  4. OMEPRAZOLE [Concomitant]
  5. DILTIAZEM HYDROCHLORIDE [Concomitant]
  6. ATORVASTATIN CALCIUM [Concomitant]
  7. WARFARIN SODIUM [Concomitant]
  8. VENLAFAXINE HCL [Concomitant]

REACTIONS (2)
  - INTENTIONAL DRUG MISUSE [None]
  - NAUSEA [None]
